FAERS Safety Report 10465383 (Version 1)
Quarter: 2014Q3

REPORT INFORMATION
  Report Type: Spontaneous
  Country: US (occurrence: US)
  Receive Date: 20140919
  Receipt Date: 20140919
  Transmission Date: 20150326
  Serious: Yes (Other)
  Sender: FDA-Public Use
  Company Number: US-PFIZER INC-2014258589

PATIENT
  Age: 59 Year
  Sex: Male
  Weight: 147.39 kg

DRUGS (10)
  1. TOPROL XL [Concomitant]
     Active Substance: METOPROLOL SUCCINATE
     Indication: HYPERTENSION
     Dosage: 50 MG, DAILY
  2. ATACAND HCT [Concomitant]
     Active Substance: CANDESARTAN CILEXETIL\HYDROCHLOROTHIAZIDE
     Indication: HYPERTENSION
     Dosage: 32/25MG DAILY
  3. DEPO-MEDROL [Suspect]
     Active Substance: METHYLPREDNISOLONE ACETATE
     Indication: INTERVERTEBRAL DISC PROTRUSION
     Dosage: 120 MG, SINGLE
     Dates: start: 20140607, end: 20140607
  4. DEPO-MEDROL [Suspect]
     Active Substance: METHYLPREDNISOLONE ACETATE
     Dosage: 120 MG, SINGLE
     Dates: start: 20140607, end: 20140607
  5. CRESTOR [Concomitant]
     Active Substance: ROSUVASTATIN CALCIUM
     Indication: DYSLIPIDAEMIA
     Dosage: 20 MG, DAILY
     Dates: start: 2010
  6. DEPO-MEDROL [Suspect]
     Active Substance: METHYLPREDNISOLONE ACETATE
     Indication: PAIN MANAGEMENT
     Dosage: 120 MG, SINGLE
     Dates: start: 20140607, end: 20140607
  7. DEPO-MEDROL [Suspect]
     Active Substance: METHYLPREDNISOLONE ACETATE
     Dosage: 120 MG, SINGLE
     Dates: start: 20140607, end: 20140607
  8. DEPO-MEDROL [Suspect]
     Active Substance: METHYLPREDNISOLONE ACETATE
     Dosage: 120 MG, SINGLE
     Dates: start: 20140607, end: 20140607
  9. DEPO-MEDROL [Suspect]
     Active Substance: METHYLPREDNISOLONE ACETATE
     Dosage: 120 MG, SINGLE
     Dates: start: 20140607, end: 20140607
  10. ASPIRIN. [Concomitant]
     Active Substance: ASPIRIN
     Dosage: 81 MG, DAILY
     Dates: start: 2010

REACTIONS (6)
  - Hypoaesthesia [Not Recovered/Not Resolved]
  - Confusional state [Not Recovered/Not Resolved]
  - Headache [Not Recovered/Not Resolved]
  - Neck pain [Not Recovered/Not Resolved]
  - Meningitis [Not Recovered/Not Resolved]
  - Disorientation [Not Recovered/Not Resolved]

NARRATIVE: CASE EVENT DATE: 20140619
